FAERS Safety Report 16311652 (Version 2)
Quarter: 2019Q3

REPORT INFORMATION
  Report Type: Report from Study
  Country: FR (occurrence: FR)
  Receive Date: 20190514
  Receipt Date: 20190702
  Transmission Date: 20191004
  Serious: Yes (Death, Other)
  Sender: FDA-Public Use
  Company Number: FR-JAZZ-2018-FR-004859

PATIENT

DRUGS (1)
  1. DEFITELIO [Suspect]
     Active Substance: DEFIBROTIDE SODIUM
     Indication: PROPHYLAXIS
     Dosage: 25 MG/KG, QD
     Dates: start: 20170830, end: 20170927

REACTIONS (3)
  - Off label use [Unknown]
  - Acute myeloid leukaemia recurrent [Unknown]
  - Sepsis [Fatal]

NARRATIVE: CASE EVENT DATE: 20170830
